FAERS Safety Report 9722313 (Version 2)
Quarter: 2014Q1

REPORT INFORMATION
  Report Type: Spontaneous
  Country: US (occurrence: US)
  Receive Date: 20131202
  Receipt Date: 20140116
  Transmission Date: 20141002
  Serious: Yes (Life-Threatening, Other)
  Sender: FDA-Public Use
  Company Number: US-JNJFOC-20131114846

PATIENT
  Age: 86 Year
  Sex: Female

DRUGS (2)
  1. XARELTO [Suspect]
     Indication: CEREBROVASCULAR ACCIDENT PROPHYLAXIS
     Route: 048
     Dates: start: 20121202, end: 20130612
  2. XARELTO [Suspect]
     Indication: ATRIAL FIBRILLATION
     Route: 048
     Dates: start: 20121202, end: 20130612

REACTIONS (5)
  - Hallucination [Recovered/Resolved]
  - Restlessness [Recovered/Resolved]
  - Paranoia [Recovered/Resolved]
  - Incorrect dose administered [Unknown]
  - Confusional state [Recovered/Resolved]
